FAERS Safety Report 19153237 (Version 2)
Quarter: 2021Q2

REPORT INFORMATION
  Report Type: Report from Study
  Country: GB (occurrence: GB)
  Receive Date: 20210419
  Receipt Date: 20210506
  Transmission Date: 20210717
  Serious: Yes (Hospitalization, Other)
  Sender: FDA-Public Use
  Company Number: GB-CELGENEUS-GBR-20210402497

PATIENT
  Sex: Male
  Weight: 93 kg

DRUGS (13)
  1. OMEPRAZOLE. [Concomitant]
     Active Substance: OMEPRAZOLE
     Indication: GASTROOESOPHAGEAL REFLUX DISEASE
     Dosage: 20
     Route: 065
     Dates: start: 20201119
  2. FOLIC ACID. [Concomitant]
     Active Substance: FOLIC ACID
     Indication: VITAMIN SUPPLEMENTATION
     Dosage: 5
     Route: 048
     Dates: start: 20201119
  3. AZACITIDINE ORAL (CC?486) [Suspect]
     Active Substance: AZACITIDINE
     Route: 048
     Dates: start: 20210407
  4. TAZOCIN [Concomitant]
     Active Substance: PIPERACILLIN SODIUM\TAZOBACTAM SODIUM
     Indication: ANTIBIOTIC THERAPY
     Dosage: 4.5
     Route: 065
     Dates: start: 202104
  5. FINASTERIDE. [Concomitant]
     Active Substance: FINASTERIDE
     Indication: UROGENITAL DISORDER
     Dosage: 5
     Route: 048
     Dates: start: 20201119
  6. COLECALCIFEROL [Concomitant]
     Active Substance: CHOLECALCIFEROL
     Indication: BLOOD CALCIUM
     Dosage: 97
     Route: 048
     Dates: start: 20201119
  7. HYDROCORTISONE. [Concomitant]
     Active Substance: HYDROCORTISONE
     Indication: ADRENAL INSUFFICIENCY
     Dosage: 20
     Route: 065
     Dates: start: 20201118
  8. AZACITIDINE ORAL (CC?486) [Suspect]
     Active Substance: AZACITIDINE
     Route: 048
     Dates: start: 20210310, end: 20210323
  9. COTRIMOXAZOLE [Concomitant]
     Active Substance: SULFAMETHOXAZOLE\TRIMETHOPRIM
     Indication: ANTIBIOTIC PROPHYLAXIS
     Dosage: 960
     Route: 065
     Dates: start: 20201216, end: 20210408
  10. AZACITIDINE ORAL (CC?486) [Suspect]
     Active Substance: AZACITIDINE
     Indication: ACUTE MYELOID LEUKAEMIA
     Route: 048
     Dates: start: 20210210
  11. CLEXANE [Concomitant]
     Active Substance: ENOXAPARIN SODIUM
     Indication: DEEP VEIN THROMBOSIS
     Dosage: 90
     Route: 065
     Dates: start: 20210224
  12. G?CSF [Concomitant]
     Active Substance: GRANULOCYTE COLONY-STIMULATING FACTOR NOS
     Indication: BONE MARROW DISORDER
     Dosage: 300
     Route: 048
     Dates: start: 202104
  13. LEVOMEPROMAZINE [Concomitant]
     Active Substance: LEVOMEPROMAZINE
     Indication: ANTIEMETIC SUPPORTIVE CARE
     Dosage: 6.25
     Route: 065
     Dates: start: 20201127

REACTIONS (3)
  - Cytomegalovirus infection [Recovered/Resolved]
  - Neutropenia [Recovered/Resolved]
  - Nausea [Recovered/Resolved]

NARRATIVE: CASE EVENT DATE: 2021
